FAERS Safety Report 10522137 (Version 1)
Quarter: 2014Q4

REPORT INFORMATION
  Report Type: Spontaneous
  Country: US (occurrence: US)
  Receive Date: 20141016
  Receipt Date: 20141016
  Transmission Date: 20150528
  Serious: No
  Sender: FDA-Public Use
  Company Number: US-PFIZER INC-2014284314

PATIENT
  Sex: Male

DRUGS (1)
  1. SPIRONOLACTONE. [Suspect]
     Active Substance: SPIRONOLACTONE
     Dosage: UNK

REACTIONS (9)
  - Diarrhoea [Unknown]
  - Abdominal pain [Unknown]
  - Influenza like illness [Unknown]
  - Dizziness [Unknown]
  - Blood triglycerides increased [Unknown]
  - Cough [Unknown]
  - Fatigue [Unknown]
  - Blood cholesterol increased [Unknown]
  - Gynaecomastia [Unknown]
